FAERS Safety Report 17268679 (Version 1)
Quarter: 2020Q1

REPORT INFORMATION
  Report Type: Spontaneous
  Country: CH (occurrence: CH)
  Receive Date: 20200114
  Receipt Date: 20200114
  Transmission Date: 20200409
  Serious: Yes (Other)
  Sender: FDA-Public Use
  Company Number: CH-GALDERMA-CH19066703

PATIENT
  Age: 64 Year
  Sex: Male

DRUGS (5)
  1. HYDROXYCHLOROQUINE [Concomitant]
     Active Substance: HYDROXYCHLOROQUINE
     Indication: WHIPPLE^S DISEASE
     Route: 065
     Dates: start: 200707, end: 200810
  2. METRONIDAZOLE. [Concomitant]
     Active Substance: METRONIDAZOLE
     Indication: GIARDIASIS
     Route: 065
  3. DOXYCYCLINE. [Suspect]
     Active Substance: DOXYCYCLINE
     Indication: WHIPPLE^S DISEASE
     Route: 065
     Dates: start: 200707, end: 200810
  4. COTRIMOXAZOLE [Concomitant]
     Active Substance: SULFAMETHOXAZOLE\TRIMETHOPRIM
     Indication: WHIPPLE^S DISEASE
     Route: 065
     Dates: start: 200602, end: 200707
  5. CEFTRIAXONE. [Concomitant]
     Active Substance: CEFTRIAXONE
     Indication: WHIPPLE^S DISEASE
     Route: 065
     Dates: start: 200602

REACTIONS (3)
  - Toxic skin eruption [Unknown]
  - Photosensitivity reaction [Unknown]
  - Intentional product use issue [Recovered/Resolved]
